FAERS Safety Report 6941860-X (Version None)
Quarter: 2010Q3

REPORT INFORMATION
  Report Type: 
  Country: None (occurrence: None)
  Receive Date: 20100826
  Receipt Date: 20100818
  Transmission Date: 20110219
  Serious: Yes (Other)
  Sender: FDA-Public Use
  Company Number: IL-BAYER-201036933GPV

PATIENT
  Age: 41 Year
  Sex: Female

DRUGS (1)
  1. MIRENA [Suspect]
     Indication: PRODUCT USED FOR UNKNOWN INDICATION
     Route: 015
     Dates: start: 20061001

REACTIONS (2)
  - COMPLICATION OF PREGNANCY [None]
  - PREGNANCY WITH CONTRACEPTIVE DEVICE [None]
